FAERS Safety Report 7960509-0 (Version None)
Quarter: 2011Q4

REPORT INFORMATION
  Report Type: 
  Country: None (occurrence: None)
  Receive Date: 20111206
  Receipt Date: 20111201
  Transmission Date: 20120403
  Serious: Yes (Hospitalization)
  Sender: FDA-Public Use
  Company Number: US-ROXANE LABORATORIES, INC.-2011-RO-01727RO

PATIENT
  Age: 54 Year
  Sex: Female

DRUGS (5)
  1. SIMVASTATIN [Suspect]
  2. LITHIUM CARBONATE [Suspect]
  3. LISINOPRIL [Suspect]
  4. ASPIRIN [Suspect]
  5. METFORMIN HCL [Suspect]

REACTIONS (2)
  - RENAL FAILURE [None]
  - TOXICITY TO VARIOUS AGENTS [None]
